FAERS Safety Report 5958727-6 (Version None)
Quarter: 2008Q4

REPORT INFORMATION
  Report Type: 
  Country: None (occurrence: None)
  Receive Date: 20081119
  Receipt Date: 20081118
  Transmission Date: 20090506
  Serious: Yes (Other)
  Sender: FDA-Public Use
  Company Number: ES-ROXANE LABORATORIES, INC.-2008-RO-00237RO

PATIENT
  Age: 91 Year
  Sex: Female

DRUGS (6)
  1. MIDAZOLAM HCL [Suspect]
     Indication: ANALGESIA
  2. ENALAPRIL MALEATE [Suspect]
     Indication: HYPERTENSION
     Dosage: 20MG
  3. MEPIVACAINE HCL [Suspect]
     Indication: SPINAL ANAESTHESIA
  4. FENTANYL [Suspect]
     Indication: ANALGESIA
  5. FLUIDS [Suspect]
     Indication: HYPOTENSION
     Route: 042
  6. EPHEDRINE HCL 1PC SOL [Suspect]
     Indication: HYPOTENSION

REACTIONS (3)
  - ANOXIC ENCEPHALOPATHY [None]
  - DRUG INTERACTION [None]
  - HYPOTENSION [None]
